FAERS Safety Report 4912031-3 (Version None)
Quarter: 2006Q1

REPORT INFORMATION
  Report Type: 
  Country: None (occurrence: None)
  Receive Date: 20060215
  Receipt Date: 20060213
  Transmission Date: 20060701
  Serious: Yes (Other)
  Sender: FDA-Public Use
  Company Number: 2006AP00699

PATIENT
  Age: 20421 Day
  Sex: Female

DRUGS (2)
  1. NEXIUM [Suspect]
     Indication: ABDOMINAL PAIN
     Route: 048
     Dates: start: 20051003, end: 20051013
  2. ACETAMINOPHEN [Concomitant]
     Indication: DIVERTICULUM INTESTINAL
     Route: 048
     Dates: start: 20051013, end: 20051013

REACTIONS (6)
  - ABDOMINAL PAIN [None]
  - DYSPEPSIA [None]
  - ERYTHEMA [None]
  - FEELING HOT AND COLD [None]
  - SENSATION OF FOREIGN BODY [None]
  - VOMITING [None]
